FAERS Safety Report 10021560 (Version 1)
Quarter: 2014Q1

REPORT INFORMATION
  Report Type: Spontaneous
  Country: US (occurrence: None)
  Receive Date: 20140318
  Receipt Date: 20140318
  Transmission Date: 20141002
  Serious: Yes (Other)
  Sender: FDA-Public Use
  Company Number: None

PATIENT
  Age: 66 Year
  Sex: Female
  Weight: 56.7 kg

DRUGS (2)
  1. GABAPENTIN [Suspect]
     Indication: NEURALGIA
     Dosage: TWO PILLS THREE TIMES DAILY TAKEN BY MOUTH
     Route: 048
     Dates: start: 20130131, end: 20130430
  2. GABAPENTIN [Suspect]
     Indication: LYMPHOMA
     Dosage: TWO PILLS THREE TIMES DAILY TAKEN BY MOUTH
     Route: 048
     Dates: start: 20130131, end: 20130430

REACTIONS (1)
  - Urinary incontinence [None]
